APPROVED DRUG PRODUCT: ENALAPRILAT
Active Ingredient: ENALAPRILAT
Strength: 1.25MG/ML
Dosage Form/Route: INJECTABLE;INJECTION
Application: A075578 | Product #001 | TE Code: AP
Applicant: DR REDDYS LABORATORIES LTD
Approved: Aug 22, 2000 | RLD: No | RS: No | Type: RX